FAERS Safety Report 16472157 (Version 2)
Quarter: 2019Q3

REPORT INFORMATION
  Report Type: Spontaneous
  Country: ES (occurrence: ES)
  Receive Date: 20190625
  Receipt Date: 20190717
  Transmission Date: 20191004
  Serious: Yes (Life-Threatening, Hospitalization, Other)
  Sender: FDA-Public Use
  Company Number: ES-ROCHE-2342948

PATIENT
  Age: 32 Year
  Sex: Female

DRUGS (1)
  1. XOLAIR [Suspect]
     Active Substance: OMALIZUMAB
     Indication: ASTHMA
     Dosage: 450 OT, UNK
     Route: 065
     Dates: start: 20190507, end: 20190507

REACTIONS (6)
  - Laryngeal obstruction [Unknown]
  - Upper airway obstruction [Unknown]
  - Stridor [Unknown]
  - Laryngeal oedema [Unknown]
  - Choking [Unknown]
  - Laryngospasm [Unknown]
